FAERS Safety Report 7774202-0 (Version None)
Quarter: 2011Q3

REPORT INFORMATION
  Report Type: 
  Country: None (occurrence: None)
  Receive Date: 20110923
  Receipt Date: 20110909
  Transmission Date: 20111222
  Serious: Yes (Other)
  Sender: FDA-Public Use
  Company Number: PHHY2011DE81324

PATIENT
  Sex: Female

DRUGS (1)
  1. TOBI [Suspect]
     Dosage: 4 DF, BID

REACTIONS (4)
  - PARESIS [None]
  - VISUAL IMPAIRMENT [None]
  - SOMNOLENCE [None]
  - MUSCLE SPASMS [None]
